FAERS Safety Report 17847181 (Version 1)
Quarter: 2020Q2

REPORT INFORMATION
  Report Type: Spontaneous
  Country: US (occurrence: US)
  Receive Date: 20200601
  Receipt Date: 20200601
  Transmission Date: 20200714
  Serious: Yes (Other)
  Sender: FDA-Public Use
  Company Number: US-SAGENT PHARMACEUTICALS-2020SAG001074

PATIENT

DRUGS (1)
  1. OXYTOCIN. [Suspect]
     Active Substance: OXYTOCIN
     Indication: LABOUR INDUCTION
     Route: 042

REACTIONS (1)
  - Hyponatraemia [Recovered/Resolved]
